FAERS Safety Report 4617587-6 (Version None)
Quarter: 2005Q1

REPORT INFORMATION
  Report Type: 
  Country: None (occurrence: None)
  Receive Date: 20050324
  Receipt Date: 20041018
  Transmission Date: 20050727
  Serious: Yes (Hospitalization)
  Sender: FDA-Public Use
  Company Number: PHBS2004BR14052

PATIENT
  Age: 73 Year
  Sex: Male
  Weight: 90 kg

DRUGS (4)
  1. ANTIDIABETICS [Concomitant]
  2. ANTIHYPERTENSIVES [Concomitant]
  3. ANTIGOUT PREPARATIONS [Concomitant]
  4. FORASEQ [Suspect]
     Indication: EMPHYSEMA
     Dosage: UNK, BID
     Dates: end: 20050218

REACTIONS (6)
  - DISEASE PROGRESSION [None]
  - DYSPNOEA [None]
  - EMPHYSEMA [None]
  - LARYNGEAL STENOSIS [None]
  - PNEUMONIA [None]
  - TRACHEOSTOMY [None]
